FAERS Safety Report 6668321-X (Version None)
Quarter: 2010Q2

REPORT INFORMATION
  Report Type: 
  Country: None (occurrence: None)
  Receive Date: 20100406
  Receipt Date: 20100323
  Transmission Date: 20101027
  Serious: Yes (Death)
  Sender: FDA-Public Use
  Company Number: TR-TYCO HEALTHCARE/MALLINCKRODT-T201000894

PATIENT
  Age: 27 Year

DRUGS (1)
  1. PENNSAID [Suspect]
     Dosage: UNK

REACTIONS (1)
  - ANAPHYLACTIC REACTION [None]
